FAERS Safety Report 8391651-0 (Version None)
Quarter: 2012Q1

REPORT INFORMATION
  Report Type: 
  Country: None (occurrence: None)
  Receive Date: 20120323
  Receipt Date: 20110408
  Transmission Date: 20120608
  Serious: Yes (Other)
  Sender: FDA-Public Use
  Company Number: 163-21880-11031392

PATIENT
  Age: 65 Year

DRUGS (1)
  1. REVLIMID [Suspect]
     Indication: MULTIPLE MYELOMA
     Dosage: 25 MG, DAIL FOR 21 DAYS, 7 OFF, PO
     Route: 048
     Dates: start: 20101110, end: 20110307

REACTIONS (1)
  - GASTROINTESTINAL HAEMORRHAGE [None]
